FAERS Safety Report 8771969 (Version 1)
Quarter: 2012Q4

REPORT INFORMATION
  Report Type: 
  Country: US (occurrence: US)
  Receive Date: 20120906
  Receipt Date: 20120906
  Transmission Date: 20130627
  Serious: No
  Sender: FDA-Public Use
  Company Number: US-009507513-1208USA010197

PATIENT

DRUGS (5)
  1. VICTRELIS [Suspect]
     Indication: HEPATITIS C
     Dosage: 800 mg, q8h
     Route: 048
     Dates: start: 201206, end: 201207
  2. RIBAPAK [Suspect]
     Indication: HEPATITIS C
  3. PEGASYS [Suspect]
     Indication: HEPATITIS C
  4. OMEPRAZOLE [Concomitant]
     Route: 048
  5. ATENOLOL [Concomitant]

REACTIONS (2)
  - Oesophageal pain [Unknown]
  - Diarrhoea [Unknown]
